FAERS Safety Report 12787109 (Version 1)
Quarter: 2016Q3

REPORT INFORMATION
  Report Type: Spontaneous
  Country: US (occurrence: US)
  Receive Date: 20160927
  Receipt Date: 20160927
  Transmission Date: 20161109
  Serious: Yes (Hospitalization)
  Sender: FDA-Public Use
  Company Number: US-ASTRAZENECA-2016SF00889

PATIENT
  Age: 25276 Day
  Sex: Male
  Weight: 134.7 kg

DRUGS (17)
  1. BUDESONIDE. [Suspect]
     Active Substance: BUDESONIDE
     Dosage: 10 MG UNKNOWN
     Route: 055
  2. SPIRIVA [Concomitant]
     Active Substance: TIOTROPIUM BROMIDE MONOHYDRATE
  3. ARIPIPRAZOLE. [Concomitant]
     Active Substance: ARIPIPRAZOLE
  4. MORPHINE [Concomitant]
     Active Substance: MORPHINE
     Indication: PAIN
  5. OXYCODONE [Concomitant]
     Active Substance: OXYCODONE
     Indication: PAIN
  6. DILTIAZEM. [Concomitant]
     Active Substance: DILTIAZEM
  7. ALBUTEROL. [Concomitant]
     Active Substance: ALBUTEROL
  8. CETIRIZINE [Concomitant]
     Active Substance: CETIRIZINE HYDROCHLORIDE
  9. LEVOFLOXACIN. [Concomitant]
     Active Substance: LEVOFLOXACIN
  10. WARFARIN [Concomitant]
     Active Substance: WARFARIN
     Indication: ATRIAL FIBRILLATION
     Dates: start: 201205
  11. GUAIFENESIN. [Concomitant]
     Active Substance: GUAIFENESIN
  12. DALIRESP [Concomitant]
     Active Substance: ROFLUMILAST
     Indication: CHRONIC OBSTRUCTIVE PULMONARY DISEASE
     Dosage: 500 MCG 30 COUNT BOTTLE DAILY
     Route: 048
     Dates: start: 20160917
  13. ATORVASTATIN [Concomitant]
     Active Substance: ATORVASTATIN
  14. OXYGEN. [Concomitant]
     Active Substance: OXYGEN
     Route: 055
  15. DIGOXIN. [Concomitant]
     Active Substance: DIGOXIN
  16. ASPIRIN. [Concomitant]
     Active Substance: ASPIRIN
  17. LORAZEPAM. [Concomitant]
     Active Substance: LORAZEPAM

REACTIONS (2)
  - Myocardial infarction [Unknown]
  - Pneumonia [Unknown]

NARRATIVE: CASE EVENT DATE: 20160524
